FAERS Safety Report 9160807 (Version 2)
Quarter: 2013Q2

REPORT INFORMATION
  Report Type: Spontaneous
  Country: AU (occurrence: AU)
  Receive Date: 20130313
  Receipt Date: 20130523
  Transmission Date: 20140414
  Serious: Yes (Hospitalization, Other)
  Sender: FDA-Public Use
  Company Number: AU-ROCHE-1195902

PATIENT
  Age: 35 Year
  Sex: Male

DRUGS (3)
  1. ZELBORAF [Suspect]
     Indication: PRODUCT USED FOR UNKNOWN INDICATION
     Route: 065
  2. ZELBORAF [Suspect]
     Dosage: RESTARTED
     Route: 065
  3. PARACETAMOL [Concomitant]
     Route: 065

REACTIONS (17)
  - Haemoptysis [Unknown]
  - Disease progression [Unknown]
  - Haematochezia [Unknown]
  - Liver function test abnormal [Unknown]
  - Bile duct stone [Unknown]
  - Sunburn [Unknown]
  - Cough [Unknown]
  - Abdominal pain upper [Unknown]
  - Squamous cell carcinoma [Unknown]
  - Hyperkeratosis [Unknown]
  - Arthralgia [Unknown]
  - Bile duct stone [Unknown]
  - Therapy responder [Unknown]
  - Lymphadenopathy mediastinal [Unknown]
  - Metastases to lung [Unknown]
  - Metastases to peritoneum [Unknown]
  - Abdominal pain upper [Unknown]
